FAERS Safety Report 7559473-8 (Version None)
Quarter: 2011Q2

REPORT INFORMATION
  Report Type: 
  Country: None (occurrence: None)
  Receive Date: 20110617
  Receipt Date: 20110617
  Transmission Date: 20111010
  Serious: Yes (Hospitalization)
  Sender: FDA-Public Use
  Company Number: None

PATIENT
  Age: 72 Year
  Sex: Male
  Weight: 117 kg

DRUGS (1)
  1. WARFARIN SODIUM [Suspect]
     Indication: ATRIAL FIBRILLATION
     Dosage: 7.5MG EVERY DAY PO
     Route: 048
     Dates: start: 20080514

REACTIONS (6)
  - LUNG CONSOLIDATION [None]
  - CHOLECYSTITIS ACUTE [None]
  - WHITE BLOOD CELL COUNT INCREASED [None]
  - PLEURAL EFFUSION [None]
  - INTRA-ABDOMINAL HAEMATOMA [None]
  - PNEUMONIA [None]
